FAERS Safety Report 8589360-8 (Version None)
Quarter: 2012Q3

REPORT INFORMATION
  Report Type: 
  Country: None (occurrence: None)
  Receive Date: 20120813
  Receipt Date: 20120802
  Transmission Date: 20120928
  Serious: Yes (Hospitalization)
  Sender: FDA-Public Use
  Company Number: BR-SANOFI-AVENTIS-2012SA055695

PATIENT
  Age: 68 Year
  Sex: Male
  Weight: 64 kg

DRUGS (6)
  1. AUTOPEN 24 [Suspect]
     Indication: DEVICE THERAPY
     Dates: start: 20120701
  2. SOMALGIN [Concomitant]
     Indication: THROMBOSIS PROPHYLAXIS
  3. METFORMIN HYDROCHLORIDE [Concomitant]
     Indication: TYPE 2 DIABETES MELLITUS
  4. DIAMICRON [Concomitant]
     Indication: TYPE 2 DIABETES MELLITUS
  5. LANTUS [Suspect]
     Route: 058
     Dates: start: 20120701
  6. LANTUS [Suspect]
     Indication: TYPE 2 DIABETES MELLITUS
     Route: 058
     Dates: start: 20040101, end: 20120701

REACTIONS (11)
  - DIZZINESS [None]
  - ASTHENIA [None]
  - HYPOGLYCAEMIA [None]
  - FALL [None]
  - CEREBROVASCULAR ACCIDENT [None]
  - HEMIPLEGIA [None]
  - TREMOR [None]
  - HYPERGLYCAEMIA [None]
  - DYSSTASIA [None]
  - DYSARTHRIA [None]
  - AKINESIA [None]
